FAERS Safety Report 5811900-X (Version None)
Quarter: 2008Q3

REPORT INFORMATION
  Report Type: 
  Country: None (occurrence: None)
  Receive Date: 20080716
  Receipt Date: 20080703
  Transmission Date: 20090109
  Serious: Yes (Death, Other)
  Sender: FDA-Public Use
  Company Number: GB-ELI_LILLY_AND_COMPANY-GB200611005127

PATIENT
  Age: 62 Year
  Sex: Female
  Weight: 86 kg

DRUGS (10)
  1. CYMBALTA [Suspect]
     Indication: DEPRESSION
     Dosage: 60 MG, UNKNOWN
     Route: 048
     Dates: start: 20060713, end: 20060721
  2. ATENOLOL [Concomitant]
     Indication: HYPERTENSION
     Dosage: 50 MG, DAILY (1/D)
     Route: 048
     Dates: start: 19940101
  3. GLICLAZIDE [Concomitant]
     Indication: TYPE 2 DIABETES MELLITUS
     Dosage: 160 MG, 2/D
     Route: 048
     Dates: start: 20021001
  4. LORAZEPAM [Concomitant]
     Indication: ANXIETY
     Dosage: 2.5 MG, 3/D
     Route: 048
     Dates: start: 20030101
  5. PROPRANOLOL [Concomitant]
     Indication: ANXIETY
     Dosage: 40 MG, DAILY (1/D)
     Route: 048
     Dates: start: 20060721
  6. VALSARTAN [Concomitant]
     Indication: HYPERTENSION
     Dosage: 80 MG, DAILY (1/D)
     Route: 048
     Dates: start: 20040801
  7. ASPIRIN [Concomitant]
     Dosage: UNK, UNKNOWN
     Route: 065
  8. LANSOPRAZOLE [Concomitant]
     Dosage: UNK, UNKNOWN
     Route: 065
  9. METOCLOPRAMID [Concomitant]
     Dosage: UNK, UNKNOWN
     Route: 065
  10. ROSUVASTATIN CALCIUM [Concomitant]
     Dosage: UNK, UNKNOWN
     Route: 065

REACTIONS (2)
  - CARDIAC ARREST [None]
  - MALAISE [None]
